FAERS Safety Report 21897529 (Version 2)
Quarter: 2023Q1

REPORT INFORMATION
  Report Type: Spontaneous
  Country: PL (occurrence: PL)
  Receive Date: 20230123
  Receipt Date: 20230129
  Transmission Date: 20230418
  Serious: No
  Sender: FDA-Public Use
  Company Number: PL-BEH-2023154312

PATIENT
  Age: 27 Year
  Sex: Male

DRUGS (1)
  1. HUMAN IMMUNOGLOBULIN G [Suspect]
     Active Substance: HUMAN IMMUNOGLOBULIN G
     Indication: Immunodeficiency common variable
     Dosage: UNK, QMT
     Route: 042

REACTIONS (3)
  - Borrelia test positive [Unknown]
  - Immunisation [Unknown]
  - Misleading laboratory test result [Unknown]
